FAERS Safety Report 16814873 (Version 1)
Quarter: 2019Q3

REPORT INFORMATION
  Report Type: Spontaneous
  Country: PL (occurrence: PL)
  Receive Date: 20190917
  Receipt Date: 20190917
  Transmission Date: 20191005
  Serious: Yes (Hospitalization)
  Sender: FDA-Public Use
  Company Number: PL-B.I. PHARMACEUTICALS,INC./RIDGEFIELD-2019-BI-101685

PATIENT
  Sex: Female

DRUGS (1)
  1. PRADAXA [Suspect]
     Active Substance: DABIGATRAN ETEXILATE MESYLATE
     Indication: PRODUCT USED FOR UNKNOWN INDICATION
     Route: 048
     Dates: end: 20190908

REACTIONS (7)
  - Fall [Recovered/Resolved]
  - Hypokalaemia [Unknown]
  - Syncope [Unknown]
  - Contusion [Recovered/Resolved]
  - Cardiovascular disorder [Unknown]
  - Traumatic haemorrhage [Recovered/Resolved]
  - Head injury [Recovered/Resolved]
